FAERS Safety Report 6249991-7 (Version None)
Quarter: 2009Q2

REPORT INFORMATION
  Report Type: 
  Country: None (occurrence: None)
  Receive Date: 20090625
  Receipt Date: 20090612
  Transmission Date: 20091009
  Serious: Yes (Hospitalization)
  Sender: FDA-Public Use
  Company Number: 09-000963

PATIENT
  Age: 39 Year
  Sex: Female
  Weight: 53.5 kg

DRUGS (1)
  1. LOESTRIN 24 FE [Suspect]
     Indication: MENSTRUAL CYCLE MANAGEMENT
     Dosage: 20/1000 UG, QD, ORAL
     Route: 048
     Dates: start: 20080101, end: 20080501

REACTIONS (3)
  - ALOPECIA [None]
  - COLITIS ULCERATIVE [None]
  - CONDITION AGGRAVATED [None]
